FAERS Safety Report 17391872 (Version 1)
Quarter: 2020Q1

REPORT INFORMATION
  Report Type: Spontaneous
  Country: CA (occurrence: CA)
  Receive Date: 20200207
  Receipt Date: 20200207
  Transmission Date: 20200409
  Serious: Yes (Other)
  Sender: FDA-Public Use
  Company Number: CA-FRESENIUS KABI-FK202001248

PATIENT
  Age: 47 Year
  Sex: Female

DRUGS (8)
  1. LINEZOLID. [Concomitant]
     Active Substance: LINEZOLID
     Indication: MYCOBACTERIAL INFECTION
  2. CEFPROZIL. [Concomitant]
     Active Substance: CEFPROZIL
     Indication: LUNG ABSCESS
     Dosage: UNKNOWN
     Route: 065
  3. TIGECYCLINE (MANUFACTURER UNKNOWN) [Suspect]
     Active Substance: TIGECYCLINE
     Indication: LUNG ABSCESS
     Dosage: UNKNOWN
     Route: 065
  4. AMIKACIN. [Concomitant]
     Active Substance: AMIKACIN
     Indication: MYCOBACTERIAL INFECTION
  5. AMIKACIN. [Concomitant]
     Active Substance: AMIKACIN
     Indication: LUNG ABSCESS
     Dosage: UNKNOWN
     Route: 065
  6. CEFPROZIL. [Concomitant]
     Active Substance: CEFPROZIL
     Indication: MYCOBACTERIAL INFECTION
  7. TIGECYCLINE (MANUFACTURER UNKNOWN) [Suspect]
     Active Substance: TIGECYCLINE
     Indication: MYCOBACTERIAL INFECTION
  8. LINEZOLID. [Concomitant]
     Active Substance: LINEZOLID
     Indication: LUNG ABSCESS
     Dosage: UNKNOWN
     Route: 065

REACTIONS (3)
  - Thrombocytopenia [Recovered/Resolved]
  - Microangiopathic haemolytic anaemia [Recovered/Resolved]
  - Pancreatitis acute [Recovered/Resolved]
